FAERS Safety Report 9526795 (Version 5)
Quarter: 2014Q4

REPORT INFORMATION
  Report Type: Spontaneous
  Country: JP (occurrence: JP)
  Receive Date: 20130916
  Receipt Date: 20141221
  Transmission Date: 20150529
  Serious: Yes (Hospitalization, Other)
  Sender: FDA-Public Use
  Company Number: JP-GLAXOSMITHKLINE-B0919253A

PATIENT
  Age: 46 Year
  Sex: Male

DRUGS (11)
  1. CONTOMIN [Concomitant]
     Active Substance: CHLORPROMAZINE
  2. LIMAS [Concomitant]
     Active Substance: LITHIUM CARBONATE
  3. DOGMATYL [Concomitant]
     Active Substance: SULPIRIDE
  4. AMOXAN [Concomitant]
     Active Substance: AMOXAPINE
  5. SILECE [Concomitant]
     Active Substance: FLUNITRAZEPAM
  6. HALCION [Concomitant]
     Active Substance: TRIAZOLAM
  7. LAMOTRIGINE. [Suspect]
     Active Substance: LAMOTRIGINE
     Indication: DEPRESSION
     Route: 048
     Dates: start: 20130710, end: 20130724
  8. DIAZEPAM. [Concomitant]
     Active Substance: DIAZEPAM
  9. CYMBALTA [Concomitant]
     Active Substance: DULOXETINE HYDROCHLORIDE
  10. CRESTOR [Concomitant]
     Active Substance: ROSUVASTATIN CALCIUM
  11. TRAZODONE [Concomitant]
     Active Substance: TRAZODONE HYDROCHLORIDE

REACTIONS (32)
  - Toxic epidermal necrolysis [Recovering/Resolving]
  - Blister [Recovered/Resolved]
  - Oral mucosal blistering [Recovered/Resolved]
  - Lip ulceration [Unknown]
  - Vulval disorder [Unknown]
  - Rash [Unknown]
  - Pyrexia [Unknown]
  - Skin erosion [Unknown]
  - Eye discharge [Unknown]
  - Mouth ulceration [Unknown]
  - Eosinophil count [Unknown]
  - Perivascular dermatitis [Unknown]
  - Drug eruption [Unknown]
  - Feeling hot [Unknown]
  - Oral mucosal erythema [Unknown]
  - Lip erosion [Unknown]
  - Lymphadenopathy [Unknown]
  - Haemorrhage subepidermal [Unknown]
  - Malaise [Unknown]
  - Blister [Unknown]
  - Ocular hyperaemia [Unknown]
  - Scab [Unknown]
  - Mouth ulceration [Unknown]
  - Erythema of eyelid [Unknown]
  - Skin atrophy [Unknown]
  - Lymphocytic infiltration [Unknown]
  - Skin oedema [Unknown]
  - Eyelid erosion [Unknown]
  - Toxic epidermal necrolysis [Unknown]
  - Epidermal necrosis [Unknown]
  - Generalised erythema [Recovered/Resolved]
  - Skin degenerative disorder [Unknown]

NARRATIVE: CASE EVENT DATE: 20130723
